FAERS Safety Report 5387716-8 (Version None)
Quarter: 2007Q3

REPORT INFORMATION
  Report Type: 
  Country: None (occurrence: None)
  Receive Date: 20070716
  Receipt Date: 20070709
  Transmission Date: 20080115
  Serious: Yes (Hospitalization, Other)
  Sender: FDA-Public Use
  Company Number: A0655041A

PATIENT
  Age: 63 Year
  Sex: Female

DRUGS (7)
  1. TYKERB [Suspect]
     Dosage: 1250MG UNKNOWN
     Route: 048
     Dates: start: 20070424, end: 20070508
  2. XELODA [Concomitant]
     Indication: BREAST CANCER
     Dosage: 1500MG TWICE PER DAY
     Route: 048
     Dates: start: 20070421, end: 20070505
  3. MEGESTROL ACETATE [Concomitant]
     Dosage: 400MG TWICE PER DAY
     Route: 048
  4. EFFEXOR [Concomitant]
     Dosage: 25MG PER DAY
     Route: 048
  5. FOSAMAX [Concomitant]
     Dosage: 70MG WEEKLY
     Route: 048
  6. ZOFRAN [Concomitant]
     Indication: NAUSEA
     Dosage: 8MG TWICE PER DAY
     Route: 048
  7. DIOVAN [Concomitant]
     Indication: HYPERTENSION
     Dosage: 320MG PER DAY
     Route: 048

REACTIONS (6)
  - ANOREXIA [None]
  - BLOOD BICARBONATE DECREASED [None]
  - BLOOD CREATININE INCREASED [None]
  - CLOSTRIDIAL INFECTION [None]
  - DIARRHOEA [None]
  - RENAL TUBULAR ACIDOSIS [None]
